FAERS Safety Report 9502429 (Version 3)
Quarter: 2016Q2

REPORT INFORMATION
  Report Type: Report from Study
  Country: US (occurrence: US)
  Receive Date: 20130906
  Receipt Date: 20160606
  Transmission Date: 20160815
  Serious: Yes (Hospitalization, Other)
  Sender: FDA-Public Use
  Company Number: US-ROCHE-1270995

PATIENT
  Sex: Female
  Weight: 53.12 kg

DRUGS (14)
  1. NPH INSULIN [Concomitant]
     Active Substance: INSULIN BEEF
     Dosage: 10 UNITS
     Route: 058
  2. PULMOZYME [Suspect]
     Active Substance: DORNASE ALFA
     Route: 055
  3. ALBUTEROL. [Concomitant]
     Active Substance: ALBUTEROL
     Indication: CYSTIC FIBROSIS
     Route: 055
  4. MONTELUKAST [Concomitant]
     Active Substance: MONTELUKAST SODIUM
     Route: 048
  5. AQUADEKS [Concomitant]
     Active Substance: MINERALS\VITAMINS
     Dosage: 3 CAPSULES
     Route: 048
  6. POLYETHYLENE GLYCOL [Concomitant]
     Active Substance: POLYETHYLENE GLYCOLS
     Route: 048
  7. ZOLPIDEM [Concomitant]
     Active Substance: ZOLPIDEM\ZOLPIDEM TARTRATE
     Dosage: H.S. PRN
     Route: 048
  8. HUMALOG [Concomitant]
     Active Substance: INSULIN LISPRO
     Dosage: 100 UNIT/ML
     Route: 058
  9. CREON 24 [Concomitant]
     Active Substance: AMYLASE\LIPASE\PROTEASE
     Dosage: 2-3 CAPSULES WITH MEALS, 1 CAPSULE WITH EACH SNACK
     Route: 065
  10. FLUOXETINE [Concomitant]
     Active Substance: FLUOXETINE HYDROCHLORIDE
     Route: 048
  11. MOMETASONE [Concomitant]
     Active Substance: MOMETASONE
     Dosage: 50 MCG/ACT
     Route: 045
  12. PANTOPRAZOLE [Concomitant]
     Active Substance: PANTOPRAZOLE SODIUM
     Route: 048
  13. URSODIOL. [Concomitant]
     Active Substance: URSODIOL
     Route: 048
  14. PULMOZYME [Suspect]
     Active Substance: DORNASE ALFA
     Indication: CYSTIC FIBROSIS
     Route: 055

REACTIONS (2)
  - Haemoptysis [Unknown]
  - Haemoptysis [Recovered/Resolved]
